FAERS Safety Report 9229238 (Version 1)
Quarter: 2013Q2

REPORT INFORMATION
  Report Type: Spontaneous
  Country: US (occurrence: US)
  Receive Date: 20130412
  Receipt Date: 20130412
  Transmission Date: 20140414
  Serious: Yes (Hospitalization)
  Sender: FDA-Public Use
  Company Number: US-ASTELLAS-2013US000660

PATIENT
  Age: 61 Year
  Sex: Male

DRUGS (3)
  1. PROGRAF [Suspect]
     Indication: RENAL TRANSPLANT
     Dosage: 0.5 MG, BID
     Route: 048
     Dates: start: 20091015
  2. PROGRAF [Suspect]
     Dosage: 1 MG, BID
     Route: 048
     Dates: start: 20100917, end: 20111017
  3. PROGRAF [Suspect]
     Dosage: 0.5 MG, BID
     Route: 048
     Dates: start: 20121217, end: 20130115

REACTIONS (2)
  - Transplant failure [Unknown]
  - Asthenia [Unknown]
